FAERS Safety Report 7579061-7 (Version None)
Quarter: 2011Q2

REPORT INFORMATION
  Report Type: 
  Country: None (occurrence: None)
  Receive Date: 20110628
  Receipt Date: 20110622
  Transmission Date: 20111010
  Serious: Yes (Other)
  Sender: FDA-Public Use
  Company Number: US-CELGENEUS-163-21880-11063115

PATIENT
  Sex: Male
  Weight: 87.9 kg

DRUGS (1)
  1. REVLIMID [Suspect]
     Indication: NON-HODGKIN'S LYMPHOMA
     Dosage: 15 MILLIGRAM
     Route: 048
     Dates: start: 20100802

REACTIONS (1)
  - SQUAMOUS CELL CARCINOMA OF SKIN [None]
